FAERS Safety Report 6196270-2 (Version None)
Quarter: 2009Q2

REPORT INFORMATION
  Report Type: 
  Country: None (occurrence: None)
  Receive Date: 20090520
  Receipt Date: 20090513
  Transmission Date: 20091009
  Serious: Yes (Life-Threatening, Hospitalization)
  Sender: FDA-Public Use
  Company Number: AU-TYCO HEALTHCARE/MALLINCKRODT-T200901038

PATIENT
  Age: 84 Year
  Sex: Female

DRUGS (1)
  1. OPTIRAY 300 [Suspect]
     Dosage: UNK
     Dates: start: 20090513, end: 20090513

REACTIONS (1)
  - ANAPHYLACTIC REACTION [None]
